FAERS Safety Report 14937932 (Version 1)
Quarter: 2018Q2

REPORT INFORMATION
  Report Type: Spontaneous
  Country: US (occurrence: US)
  Receive Date: 20180507
  Receipt Date: 20180507
  Transmission Date: 20180711
  Serious: Yes (Other)
  Sender: FDA-Public Use
  Company Number: None

PATIENT
  Age: 56 Year
  Sex: Female
  Weight: 75.15 kg

DRUGS (5)
  1. GAMUNEX-C 10% 10GM [Concomitant]
     Dates: start: 20180423, end: 20180424
  2. GAMUNEX-C [Suspect]
     Active Substance: HUMAN IMMUNOGLOBULIN G
     Indication: MULTIPLE SCLEROSIS
     Dosage: ?          OTHER FREQUENCY:2 DAYS, BIWEEKLY;?
     Route: 042
     Dates: start: 20180425, end: 20180425
  3. GAMUNEX-C [Concomitant]
     Active Substance: HUMAN IMMUNOGLOBULIN G
     Dates: start: 20180423, end: 20180424
  4. GAMUNEX-C [Suspect]
     Active Substance: HUMAN IMMUNOGLOBULIN G
     Indication: MULTIPLE SCLEROSIS
     Dosage: ?          OTHER FREQUENCY:2 DAYS, BIWEEKLY;?
     Route: 042
     Dates: start: 20180425, end: 20180425
  5. GAMUNEX-C !0% 1 GM [Concomitant]
     Dates: start: 20180423, end: 20180424

REACTIONS (3)
  - Blister [None]
  - Infusion related reaction [None]
  - Rash [None]

NARRATIVE: CASE EVENT DATE: 20180425
